FAERS Safety Report 7751720-2 (Version None)
Quarter: 2011Q3

REPORT INFORMATION
  Report Type: 
  Country: None (occurrence: None)
  Receive Date: 20110915
  Receipt Date: 20110909
  Transmission Date: 20111222
  Serious: Yes (Hospitalization)
  Sender: FDA-Public Use
  Company Number: US-BIOGENIDEC-2011BI034147

PATIENT
  Age: 21 Year
  Sex: Female

DRUGS (1)
  1. TYSABRI [Suspect]
     Indication: MULTIPLE SCLEROSIS
     Route: 042
     Dates: start: 20110405, end: 20110802

REACTIONS (5)
  - EAR INFECTION [None]
  - URINARY TRACT INFECTION [None]
  - DECREASED IMMUNE RESPONSIVENESS [None]
  - HEADACHE [None]
  - SINUSITIS [None]
